FAERS Safety Report 15128705 (Version 2)
Quarter: 2018Q4

REPORT INFORMATION
  Report Type: Other
  Country: GB (occurrence: GB)
  Receive Date: 20180711
  Receipt Date: 20181031
  Transmission Date: 20190204
  Serious: No
  Sender: FDA-Public Use
  Company Number: GB-LUPIN PHARMACEUTICALS INC.-2018-03525

PATIENT
  Sex: Female

DRUGS (1)
  1. LISINOPRIL TABLETS [Suspect]
     Active Substance: LISINOPRIL
     Indication: PRODUCT USED FOR UNKNOWN INDICATION
     Dosage: UNK
     Route: 048

REACTIONS (1)
  - Cough [Unknown]
